FAERS Safety Report 9845494 (Version 1)
Quarter: 2014Q1

REPORT INFORMATION
  Report Type: Spontaneous
  Country: US (occurrence: None)
  Receive Date: 20140123
  Receipt Date: 20140123
  Transmission Date: 20141002
  Serious: Yes (Disabling, Other)
  Sender: FDA-Public Use
  Company Number: TIR-03160

PATIENT
  Age: 75 Year
  Sex: Female
  Weight: 64.41 kg

DRUGS (3)
  1. TIROSINT [Suspect]
     Indication: HYPOTHYROIDISM
     Route: 048
     Dates: start: 2013
  2. ENALAPRIL [Concomitant]
  3. PREMARIN (CONJUGATED ESTROGENS TABLETS, USP) [Concomitant]

REACTIONS (11)
  - Vitreous floaters [None]
  - Condition aggravated [None]
  - Feeling abnormal [None]
  - Vision blurred [None]
  - Sinus disorder [None]
  - Pruritus [None]
  - Dizziness [None]
  - Dysphonia [None]
  - Hypoacusis [None]
  - Visual acuity reduced [None]
  - Swelling [None]
